FAERS Safety Report 26185058 (Version 1)
Quarter: 2025Q4

REPORT INFORMATION
  Report Type: Spontaneous
  Country: EU (occurrence: EU)
  Receive Date: 20251222
  Receipt Date: 20251222
  Transmission Date: 20260117
  Serious: Yes (Hospitalization, Other)
  Sender: AUROBINDO
  Company Number: EU-AFSSAPS-NY2025001885

PATIENT
  Age: 75 Year
  Sex: Male
  Weight: 94.1 kg

DRUGS (9)
  1. RIVAROXABAN [Suspect]
     Active Substance: RIVAROXABAN
     Indication: Atrial fibrillation
     Dosage: 20 MILLIGRAM, ONCE A DAY
     Route: 061
     Dates: end: 20251024
  2. TELMISARTAN [Concomitant]
     Active Substance: TELMISARTAN
     Indication: Hypertension
     Dosage: 80 MILLIGRAM, ONCE A DAY
     Route: 061
  3. ATENOLOL [Concomitant]
     Active Substance: ATENOLOL
     Indication: Hypertension
     Dosage: 100 MILLIGRAM, ONCE A DAY
     Route: 061
  4. TRIMEBUTINE [Concomitant]
     Active Substance: TRIMEBUTINE
     Indication: Gastrointestinal stromal tumour
     Dosage: 2 DOSAGE FORM, ONCE A DAY
     Route: 061
  5. LOPERAMIDE [Concomitant]
     Active Substance: LOPERAMIDE
     Indication: Diarrhoea
     Dosage: 1 DOSAGE FORM
     Route: 061
  6. TAMSULOSIN HYDROCHLORIDE [Concomitant]
     Active Substance: TAMSULOSIN HYDROCHLORIDE
     Indication: Benign prostatic hyperplasia
     Route: 061
  7. ACETAMINOPHEN [Concomitant]
     Active Substance: ACETAMINOPHEN
     Indication: Pain
     Dosage: 1 DOSAGE FORM
     Route: 061
  8. PANTOPRAZOLE [Concomitant]
     Active Substance: PANTOPRAZOLE
     Indication: Gastrointestinal stromal tumour
     Dosage: 1 DOSAGE FORM
     Route: 061
  9. FOLIC ACID [Concomitant]
     Active Substance: FOLIC ACID
     Indication: Vitamin supplementation
     Route: 061

REACTIONS (1)
  - Shock haemorrhagic [Recovered/Resolved]

NARRATIVE: CASE EVENT DATE: 20251024
